FAERS Safety Report 5987660-9 (Version None)
Quarter: 2008Q4

REPORT INFORMATION
  Report Type: 
  Country: None (occurrence: None)
  Receive Date: 20081209
  Receipt Date: 20081114
  Transmission Date: 20090506
  Serious: No
  Sender: FDA-Public Use
  Company Number: US-B.I. PHARMACEUTICALS,INC./RIDGEFIELD-2008-BP-17265BP

PATIENT
  Sex: Male

DRUGS (7)
  1. MIRAPEX [Suspect]
     Indication: PARKINSON'S DISEASE
  2. LIPITOR [Concomitant]
  3. OXYBUTIN [Concomitant]
  4. AMANTADINE HCL [Concomitant]
     Dosage: 200MG
  5. SINEMET CR [Concomitant]
  6. SINEMET [Concomitant]
  7. UNSPECIFIED BLOOD PRESSURE MEDICATION [Concomitant]

REACTIONS (4)
  - DRUG INEFFECTIVE [None]
  - FALL [None]
  - HEAD INJURY [None]
  - SKIN LACERATION [None]
